FAERS Safety Report 7578130-5 (Version None)
Quarter: 2011Q2

REPORT INFORMATION
  Report Type: 
  Country: None (occurrence: None)
  Receive Date: 20110628
  Receipt Date: 20110607
  Transmission Date: 20111010
  Serious: Yes (Hospitalization)
  Sender: FDA-Public Use
  Company Number: A0870502A

PATIENT
  Age: 61 Year
  Sex: Male
  Weight: 120 kg

DRUGS (8)
  1. LIPITOR [Concomitant]
  2. FLOMAX [Concomitant]
  3. DOXAZOSIN MESYLATE [Concomitant]
  4. ALTACE [Concomitant]
  5. AVANDAMET [Suspect]
     Route: 048
     Dates: start: 20060101, end: 20070101
  6. NIASPAN [Concomitant]
  7. TRICOR [Concomitant]
  8. OXAPROZIN [Concomitant]

REACTIONS (1)
  - MYOCARDIAL INFARCTION [None]
